FAERS Safety Report 7691451-0 (Version None)
Quarter: 2011Q3

REPORT INFORMATION
  Report Type: 
  Country: None (occurrence: None)
  Receive Date: 20110818
  Receipt Date: 20110812
  Transmission Date: 20111222
  Serious: Yes (Life-Threatening, Other)
  Sender: FDA-Public Use
  Company Number: PHHY2011BR72769

PATIENT
  Sex: Male

DRUGS (6)
  1. ASPIRIN [Concomitant]
     Indication: RENAL DISORDER
     Dosage: UNK UKN, UNK
     Route: 048
  2. EXFORGE [Suspect]
     Indication: HYPERTENSION
     Dosage: 320 MG VALSARTAN AND 5 MG AMLODIPINE, 1 TAB DAILY
     Route: 048
  3. METFORMIN HYDROCHLORIDE [Concomitant]
     Indication: TYPE 1 DIABETES MELLITUS
     Dosage: UNK UKN, UNK
     Route: 048
  4. HUMALOG [Concomitant]
     Indication: TYPE 1 DIABETES MELLITUS
     Dosage: 1 DF, QID
     Route: 058
  5. LANTUS [Concomitant]
     Indication: TYPE 1 DIABETES MELLITUS
     Dosage: 1 DF, ONCE A DAY
     Route: 058
  6. VYTORIN [Concomitant]
     Indication: BLOOD CHOLESTEROL INCREASED
     Dosage: UNK UKN, UNK
     Route: 048
     Dates: start: 20110601

REACTIONS (5)
  - HEADACHE [None]
  - HYPERGLYCAEMIA [None]
  - EYE PAIN [None]
  - DIABETES MELLITUS [None]
  - BLOOD PRESSURE SYSTOLIC INCREASED [None]
